FAERS Safety Report 4955112-0 (Version None)
Quarter: 2006Q1

REPORT INFORMATION
  Report Type: 
  Country: None (occurrence: None)
  Receive Date: 20060322
  Receipt Date: 20060303
  Transmission Date: 20060701
  Serious: Yes (Life-Threatening, Hospitalization)
  Sender: FDA-Public Use
  Company Number: US200603001235

PATIENT
  Age: 60 Year
  Sex: Male
  Weight: 130.6 kg

DRUGS (8)
  1. SOMATROPIN              (SOMATROPIN) VIAL [Suspect]
     Indication: GROWTH HORMONE DEFICIENCY
     Dosage: 0.7 MG, DAILY (1/D)
     Dates: start: 20010115
  2. PRILOSEC [Concomitant]
  3. ARTHROTEC [Concomitant]
  4. FLOMAX [Concomitant]
  5. CARDIZEM [Concomitant]
  6. ALBUTEROL [Concomitant]
  7. ACCUPRIL [Concomitant]
  8. PLAVIX [Concomitant]

REACTIONS (2)
  - COLON CANCER [None]
  - METASTASES TO LYMPH NODES [None]
